FAERS Safety Report 9464847 (Version 2)
Quarter: 2013Q4

REPORT INFORMATION
  Report Type: Spontaneous
  Country: US (occurrence: US)
  Receive Date: 20130819
  Receipt Date: 20131126
  Transmission Date: 20140711
  Serious: No
  Sender: FDA-Public Use
  Company Number: US-PFIZER INC-2013235919

PATIENT
  Sex: Male

DRUGS (1)
  1. SUTENT [Suspect]
     Indication: NEOPLASM MALIGNANT
     Dosage: 50 MG, CYCLIC (DAILY, WITH 28 DAYS ON AND 14 DAYS OFF)

REACTIONS (10)
  - Wheezing [Unknown]
  - Cough [Unknown]
  - Fatigue [Unknown]
  - Diarrhoea [Unknown]
  - Flatulence [Unknown]
  - Disease progression [Unknown]
  - Neoplasm malignant [Unknown]
  - Acne [Unknown]
  - Cheilitis [Unknown]
  - Glossodynia [Unknown]
